FAERS Safety Report 6647686-9 (Version None)
Quarter: 2010Q1

REPORT INFORMATION
  Report Type: 
  Country: None (occurrence: None)
  Receive Date: 20100323
  Receipt Date: 20100323
  Transmission Date: 20100710
  Serious: Yes (Life-Threatening)
  Sender: FDA-Public Use
  Company Number: None

PATIENT
  Sex: Male
  Weight: 94.3482 kg

DRUGS (1)
  1. ACYCLOVIR [Suspect]
     Dosage: 400 MG TABLETS 2-DAILY MOUTH
     Route: 048
     Dates: start: 20100304, end: 20100306

REACTIONS (14)
  - ASTHENIA [None]
  - BACK PAIN [None]
  - BLISTER [None]
  - BLOOD URINE PRESENT [None]
  - CHROMATURIA [None]
  - CONFUSIONAL STATE [None]
  - CONTUSION [None]
  - DIZZINESS [None]
  - ERYTHEMA [None]
  - FATIGUE [None]
  - HEADACHE [None]
  - PRURITUS [None]
  - RASH [None]
  - SWELLING [None]
